FAERS Safety Report 6187493-7 (Version None)
Quarter: 2009Q2

REPORT INFORMATION
  Report Type: 
  Country: None (occurrence: None)
  Receive Date: 20090512
  Receipt Date: 20090505
  Transmission Date: 20091009
  Serious: Yes (Other)
  Sender: FDA-Public Use
  Company Number: PT-ABBOTT-09P-130-0571541-00

PATIENT
  Age: 60 Year
  Sex: Male

DRUGS (3)
  1. CATALIP [Suspect]
     Indication: DRUG USE FOR UNKNOWN INDICATION
     Route: 048
     Dates: start: 20081015
  2. ALFUZOSINA [Suspect]
     Indication: DRUG USE FOR UNKNOWN INDICATION
  3. ALOPURINOL [Suspect]
     Indication: DRUG USE FOR UNKNOWN INDICATION

REACTIONS (1)
  - EYE HAEMORRHAGE [None]
